FAERS Safety Report 10501650 (Version 2)
Quarter: 2014Q4

REPORT INFORMATION
  Report Type: Spontaneous
  Country: JP (occurrence: JP)
  Receive Date: 20141007
  Receipt Date: 20141007
  Transmission Date: 20150528
  Serious: Yes (Hospitalization)
  Sender: FDA-Public Use
  Company Number: JP-EISAI MEDICAL RESEARCH-E3810-07099-SPO-JP

PATIENT
  Sex: Female

DRUGS (3)
  1. RABEFINE [Suspect]
     Active Substance: RABEPRAZOLE
     Indication: HELICOBACTER INFECTION
     Route: 048
     Dates: start: 20140424, end: 20140430
  2. METRONIDAZOLE. [Suspect]
     Active Substance: METRONIDAZOLE
     Indication: HELICOBACTER INFECTION
     Route: 048
     Dates: start: 20140424, end: 20140430
  3. AMOXICILLIN HYDRATE [Suspect]
     Active Substance: AMOXICILLIN
     Indication: HELICOBACTER INFECTION
     Route: 048
     Dates: start: 20140424, end: 20140430

REACTIONS (1)
  - Enterocolitis haemorrhagic [Recovered/Resolved]

NARRATIVE: CASE EVENT DATE: 20140424
